FAERS Safety Report 14166085 (Version 2)
Quarter: 2017Q4

REPORT INFORMATION
  Report Type: Spontaneous
  Country: US (occurrence: US)
  Receive Date: 20171107
  Receipt Date: 20171215
  Transmission Date: 20180321
  Serious: Yes (Other)
  Sender: FDA-Public Use
  Company Number: US-PFIZER INC-2017475851

PATIENT
  Age: 40 Year
  Sex: Female

DRUGS (20)
  1. IBUPROFEN. [Concomitant]
     Active Substance: IBUPROFEN
     Dosage: 600 MG, UNK (AS DIRECTED)
     Route: 048
  2. LETROZOLE. [Concomitant]
     Active Substance: LETROZOLE
     Dosage: 2.5 MG, 1X/DAY
     Route: 048
  3. NASONEX [Concomitant]
     Active Substance: MOMETASONE FUROATE
     Dosage: UNK (50 UG/ACTUATION AS DIRECTED)
     Route: 045
  4. AVONEX [Concomitant]
     Active Substance: INTERFERON BETA-1A
     Dosage: UNK UNK, WEEKLY(30 MCG/0.5ML 1 SHOT)
     Route: 030
  5. BUPROPION HCL [Concomitant]
     Active Substance: BUPROPION HYDROCHLORIDE
     Dosage: 300 MG, 1X/DAY
     Route: 048
  6. CALCIUM CARBONATE. [Concomitant]
     Active Substance: CALCIUM CARBONATE
     Dosage: 600 MG, 2X/DAY (1,500 MG)
     Route: 048
  7. FERROUS SULFATE. [Concomitant]
     Active Substance: FERROUS SULFATE
     Dosage: 325 MG, 3X/DAY (325 MG (65 MG IRON))
     Route: 048
  8. METOPROLOL SUCCINATE. [Concomitant]
     Active Substance: METOPROLOL SUCCINATE
     Dosage: 100 MG, 1X/DAY
     Route: 048
  9. ROPINIROLE. [Concomitant]
     Active Substance: ROPINIROLE
     Dosage: 1 MG, 1X/DAY
     Route: 048
  10. VITAMIN D3 [Concomitant]
     Active Substance: CHOLECALCIFEROL
     Dosage: 2000 IU, 1X/DAY
     Route: 048
  11. CAPSAICIN. [Concomitant]
     Active Substance: CAPSAICIN
     Dosage: 0.1 MG, UNK (AS DIRECTED)
     Route: 061
  12. LYRICA [Suspect]
     Active Substance: PREGABALIN
     Indication: FIBROMYALGIA
     Dosage: 225 MG, 2X/DAY
     Route: 048
     Dates: start: 20150326, end: 20171022
  13. LACTULOSE. [Concomitant]
     Active Substance: LACTULOSE
     Dosage: UNK (1-2 TABLESPOON)
     Route: 048
  14. OXYCODONE [Concomitant]
     Active Substance: OXYCODONE
     Dosage: UNK UNK, 3X/DAY (1-1/2 TABLETS UPTO 3 TIMES DAILY)
  15. PHENTERMINE. [Concomitant]
     Active Substance: PHENTERMINE
     Dosage: 30 MG, 1X/DAY
     Route: 048
  16. PRILOSEC [Concomitant]
     Active Substance: OMEPRAZOLE MAGNESIUM
     Dosage: 20 MG, 1X/DAY
     Route: 048
  17. XYZAL [Concomitant]
     Active Substance: LEVOCETIRIZINE DIHYDROCHLORIDE
     Dosage: 5 MG, 1X/DAY
     Route: 048
  18. AMLODIPINE BESYLATE AND BENAZEPRIL HYDROCHLORIDE [Concomitant]
     Active Substance: AMLODIPINE BESYLATE\BENAZEPRIL HYDROCHLORIDE
     Dosage: UNK, 1X/DAY [AMLODIPINE BESILATE 5 MG-BENAZEPRIL HYDROCHLORIDE 10 MG]
     Route: 048
  19. VENTOLIN ROTAHALER/ROTACAPS [Concomitant]
     Dosage: 90 UG, UNK (LNHL AS DIRECTED)
  20. FLEXERIL [Concomitant]
     Active Substance: CYCLOBENZAPRINE HYDROCHLORIDE
     Dosage: UNK UNK, AS NEEDED (10 MG 5 MG TAKE 1/2 TABLET)

REACTIONS (3)
  - Anxiety [Recovered/Resolved]
  - Hallucination, visual [Recovered/Resolved]
  - Accidental overdose [Recovered/Resolved]

NARRATIVE: CASE EVENT DATE: 20171022
